FAERS Safety Report 5142128-7 (Version None)
Quarter: 2006Q4

REPORT INFORMATION
  Report Type: 
  Country: None (occurrence: None)
  Receive Date: 20061102
  Receipt Date: 20061005
  Transmission Date: 20070319
  Serious: Yes (Life-Threatening)
  Sender: FDA-Public Use
  Company Number: JP-AVENTIS-200613055JP

PATIENT
  Age: 87 Year
  Sex: Male

DRUGS (6)
  1. AMARYL [Suspect]
     Indication: DIABETES MELLITUS
     Route: 048
     Dates: start: 20030717, end: 20061003
  2. KLARICID [Suspect]
     Indication: BRONCHITIS
     Route: 048
     Dates: start: 20060930, end: 20061003
  3. PL GRAN. [Concomitant]
     Indication: BRONCHITIS
     Route: 048
     Dates: start: 20060930, end: 20061003
  4. PROSNER [Concomitant]
     Indication: PERIPHERAL CIRCULATORY FAILURE
     Dosage: DOSE: 2 TABLETS/DAY
     Route: 048
     Dates: start: 20051027
  5. NARCARICIN [Concomitant]
     Dosage: DOSE: 1 TABLETS/DAY
     Route: 048
     Dates: start: 20030717
  6. NIVADIL [Concomitant]
     Indication: HYPERTENSION
     Route: 048
     Dates: start: 20030717

REACTIONS (9)
  - BLOOD GLUCOSE INCREASED [None]
  - COLD SWEAT [None]
  - DEPRESSED LEVEL OF CONSCIOUSNESS [None]
  - DRUG INTERACTION [None]
  - FATIGUE [None]
  - HYPOGLYCAEMIA [None]
  - HYPOGLYCAEMIC COMA [None]
  - MUSCULOSKELETAL STIFFNESS [None]
  - SNORING [None]
